FAERS Safety Report 23017572 (Version 4)
Quarter: 2024Q1

REPORT INFORMATION
  Report Type: Spontaneous
  Country: US (occurrence: US)
  Receive Date: 20231003
  Receipt Date: 20240205
  Transmission Date: 20240410
  Serious: Yes (Other)
  Sender: FDA-Public Use
  Company Number: US-Vifor (International) Inc.-VIT-2023-07243

PATIENT
  Age: 16 Year
  Sex: Female
  Weight: 48.3 kg

DRUGS (13)
  1. MIRCERA [Suspect]
     Active Substance: METHOXY POLYETHYLENE GLYCOL-EPOETIN BETA
     Indication: Nephrogenic anaemia
     Route: 058
     Dates: start: 20200115, end: 20200426
  2. MIRCERA [Suspect]
     Active Substance: METHOXY POLYETHYLENE GLYCOL-EPOETIN BETA
     Route: 058
     Dates: start: 20221227, end: 20230105
  3. MIRCERA [Suspect]
     Active Substance: METHOXY POLYETHYLENE GLYCOL-EPOETIN BETA
     Route: 058
     Dates: start: 20230123, end: 20230418
  4. MIRCERA [Suspect]
     Active Substance: METHOXY POLYETHYLENE GLYCOL-EPOETIN BETA
     Route: 058
     Dates: start: 20230421
  5. DESFERAL [Suspect]
     Active Substance: DEFEROXAMINE MESYLATE
  6. CYCLOSPORINE [Suspect]
     Active Substance: CYCLOSPORINE
  7. AMLODIPINE [Suspect]
     Active Substance: AMLODIPINE BESYLATE
  8. PREDNISONE [Suspect]
     Active Substance: PREDNISONE
  9. HYDROCORTISONE [Suspect]
     Active Substance: HYDROCORTISONE
     Indication: Endocrine disorder
  10. MYCOPHENOLIC ACID [Suspect]
     Active Substance: MYCOPHENOLIC ACID
  11. NORETHINDRONE [Suspect]
     Active Substance: NORETHINDRONE
  12. DARBEPOETIN ALFA [Concomitant]
     Active Substance: DARBEPOETIN ALFA
     Route: 058
     Dates: start: 20200426, end: 20201223
  13. INSULIN NOS [Concomitant]
     Active Substance: INSULIN NOS
     Indication: Endocrine disorder

REACTIONS (4)
  - Aplasia pure red cell [Unknown]
  - Iron overload [Unknown]
  - Off label use [Unknown]
  - Contraindicated product administered [Unknown]

NARRATIVE: CASE EVENT DATE: 20221227
